FAERS Safety Report 16780990 (Version 1)
Quarter: 2019Q3

REPORT INFORMATION
  Report Type: Spontaneous
  Country: AR (occurrence: AR)
  Receive Date: 20190906
  Receipt Date: 20190906
  Transmission Date: 20191005
  Serious: Yes (Hospitalization, Other)
  Sender: FDA-Public Use
  Company Number: AR-PFIZER INC-2019382385

PATIENT
  Age: 68 Year
  Sex: Female

DRUGS (4)
  1. SUTENT [Suspect]
     Active Substance: SUNITINIB MALATE
     Indication: RENAL CANCER METASTATIC
     Dosage: 37.5 MG, CYCLIC (3 WEEKS ON TREATMENT, 1 WEEK REST)
     Dates: start: 20190318, end: 201906
  2. SUTENT [Suspect]
     Active Substance: SUNITINIB MALATE
     Dosage: 37.5 MG, CYCLIC (3 WEEKS ON TREATMENT, 1 WEEK REST)
     Dates: start: 201907, end: 201908
  3. SUTENT [Suspect]
     Active Substance: SUNITINIB MALATE
     Dosage: 37.5 MG, CYCLIC (3 WEEKS ON TREATMENT, 1 WEEK REST)
     Dates: start: 201907, end: 201908
  4. SUTENT [Suspect]
     Active Substance: SUNITINIB MALATE
     Dosage: 37.5 MG, CYCLIC (3 WEEKS ON TREATMENT, 1 WEEK REST)
     Dates: start: 20190318, end: 201906

REACTIONS (6)
  - Vomiting [Unknown]
  - Ulcer haemorrhage [Unknown]
  - Gastric ulcer [Unknown]
  - Oesophagitis [Unknown]
  - Burn oesophageal [Unknown]
  - Pneumonia [Unknown]

NARRATIVE: CASE EVENT DATE: 2019
